FAERS Safety Report 8354804-3 (Version None)
Quarter: 2012Q2

REPORT INFORMATION
  Report Type: 
  Country: None (occurrence: None)
  Receive Date: 20120511
  Receipt Date: 20120507
  Transmission Date: 20120825
  Serious: Yes (Other)
  Sender: FDA-Public Use
  Company Number: US-JNJFOC-20120507923

PATIENT
  Age: 56 Year
  Sex: Male
  Weight: 81.65 kg

DRUGS (2)
  1. PREVACID [Concomitant]
     Indication: GASTROOESOPHAGEAL REFLUX DISEASE
     Route: 065
  2. BENADRYL [Suspect]
     Indication: HYPERSENSITIVITY
     Route: 048
     Dates: start: 20120505, end: 20120505

REACTIONS (4)
  - LOSS OF CONSCIOUSNESS [None]
  - NAUSEA [None]
  - VERTIGO [None]
  - VOMITING [None]
